FAERS Safety Report 24291167 (Version 1)
Quarter: 2024Q3

REPORT INFORMATION
  Report Type: Spontaneous
  Country: IT (occurrence: IT)
  Receive Date: 20240906
  Receipt Date: 20240906
  Transmission Date: 20241016
  Serious: Yes (Death, Other)
  Sender: ARGENX BVBA
  Company Number: IT-ARGENX-2024-ARGX-IT007461

PATIENT

DRUGS (1)
  1. VYVGART [Suspect]
     Active Substance: EFGARTIGIMOD ALFA-FCAB
     Indication: Myasthenia gravis
     Dosage: ONE COURSE OF VYVGART IV
     Route: 042

REACTIONS (1)
  - Cardiac arrest [Fatal]
